FAERS Safety Report 8340884-8 (Version None)
Quarter: 2012Q2

REPORT INFORMATION
  Report Type: 
  Country: None (occurrence: None)
  Receive Date: 20120507
  Receipt Date: 20120426
  Transmission Date: 20120825
  Serious: Yes (Hospitalization, Other)
  Sender: FDA-Public Use
  Company Number: US-ROCHE-1047456

PATIENT
  Sex: Female

DRUGS (4)
  1. COPEGUS [Suspect]
     Indication: HEPATITIS C
     Route: 065
     Dates: start: 20120113, end: 20120211
  2. TELAPREVIR [Suspect]
     Indication: HEPATITIS C
     Route: 065
     Dates: start: 20120113, end: 20120211
  3. PEGASYS [Suspect]
     Indication: HEPATITIS C
     Route: 058
     Dates: start: 20120113, end: 20120211
  4. TRAZODONE HCL [Concomitant]
     Route: 065

REACTIONS (15)
  - CHOLECYSTITIS [None]
  - DYSPNOEA [None]
  - HEPATITIS TOXIC [None]
  - ABDOMINAL PAIN UPPER [None]
  - PNEUMONIA [None]
  - SEPSIS [None]
  - PANCYTOPENIA [None]
  - ANAEMIA [None]
  - DISSEMINATED INTRAVASCULAR COAGULATION [None]
  - PLEURAL EFFUSION [None]
  - MITRAL VALVE INCOMPETENCE [None]
  - NEUTROPENIA [None]
  - FATIGUE [None]
  - INFECTION [None]
  - BLOOD SODIUM DECREASED [None]
